FAERS Safety Report 9785243 (Version 1)
Quarter: 2013Q4

REPORT INFORMATION
  Report Type: Spontaneous
  Country: US (occurrence: US)
  Receive Date: 20131227
  Receipt Date: 20131227
  Transmission Date: 20140711
  Serious: Yes (Disabling, Other)
  Sender: FDA-Public Use
  Company Number: US-GE HEALTHCARE MEDICAL DIAGNOSTICS-OSCN-PR-1311S-0096

PATIENT
  Age: 47 Year
  Sex: Male

DRUGS (21)
  1. OMNISCAN [Suspect]
     Indication: PRODUCT USED FOR UNKNOWN INDICATION
  2. OPTIMARK [Suspect]
     Indication: PRODUCT USED FOR UNKNOWN INDICATION
  3. PROHANCE [Suspect]
     Indication: PRODUCT USED FOR UNKNOWN INDICATION
  4. MULTIHANCE [Suspect]
     Indication: PRODUCT USED FOR UNKNOWN INDICATION
  5. MAGNEVIST [Suspect]
     Indication: PRODUCT USED FOR UNKNOWN INDICATION
  6. DEMEROL [Concomitant]
  7. BENADRYL [Concomitant]
  8. EPOGEN [Concomitant]
  9. IRON [Concomitant]
  10. METHADONE [Concomitant]
     Indication: ANALGESIC THERAPY
     Dates: start: 2006
  11. EFFEXOR XR [Concomitant]
     Indication: ANALGESIC THERAPY
     Route: 048
     Dates: start: 2006
  12. VITAMINS [Concomitant]
  13. HYDROCODONE [Concomitant]
     Indication: ANALGESIC THERAPY
     Dates: start: 2006
  14. FENTANYL [Concomitant]
     Indication: ANALGESIC THERAPY
     Route: 062
  15. TOPROL XL [Concomitant]
     Indication: HYPERTENSION
     Dates: start: 1995, end: 2006
  16. FOSRENOL [Concomitant]
     Route: 048
     Dates: start: 2006
  17. URSODIOL [Concomitant]
     Route: 048
  18. AMBIEN [Concomitant]
     Route: 048
  19. SYNERCID [Concomitant]
  20. BACLOFEN [Concomitant]
  21. DILAUDID [Concomitant]
     Route: 048

REACTIONS (13)
  - Nephrogenic systemic fibrosis [Not Recovered/Not Resolved]
  - Skin necrosis [Not Recovered/Not Resolved]
  - Skin hypertrophy [Not Recovered/Not Resolved]
  - Skin swelling [Not Recovered/Not Resolved]
  - Pruritus [Not Recovered/Not Resolved]
  - Dry skin [Not Recovered/Not Resolved]
  - Skin exfoliation [Not Recovered/Not Resolved]
  - Loss of control of legs [Not Recovered/Not Resolved]
  - Gait disturbance [Not Recovered/Not Resolved]
  - Dysstasia [Not Recovered/Not Resolved]
  - Insomnia [Not Recovered/Not Resolved]
  - Pain [Not Recovered/Not Resolved]
  - Depression [Not Recovered/Not Resolved]
